FAERS Safety Report 18632966 (Version 9)
Quarter: 2023Q1

REPORT INFORMATION
  Report Type: Report from Study
  Country: CN (occurrence: None)
  Receive Date: 20201218
  Receipt Date: 20230306
  Transmission Date: 20230418
  Serious: Yes (Life-Threatening)
  Sender: FDA-Public Use
  Company Number: CN-ROCHE-2732474

PATIENT
  Age: 57 Year
  Sex: Male
  Weight: 74 kg

DRUGS (30)
  1. ATEZOLIZUMAB [Suspect]
     Active Substance: ATEZOLIZUMAB
     Indication: Lung adenocarcinoma
     Dosage: ON 03/DEC/2020, HE RECEIVED MOST RECENT DOSE OF BLINDED ATEZOLIZUMAB ADMINISTERED PRIOR TO ONSET OF
     Route: 041
     Dates: start: 20201203
  2. BEVACIZUMAB [Suspect]
     Active Substance: BEVACIZUMAB
     Indication: Lung adenocarcinoma
     Dosage: ON 03/DEC/2020, HE RECEIVED MOST RECENT DOSE OF BEVACIZUMAB (1110 MG) PRIOR TO ONSET OF SERIOUS ADVE
     Route: 042
     Dates: start: 20201203
  3. CARBOPLATIN [Suspect]
     Active Substance: CARBOPLATIN
     Indication: Lung adenocarcinoma
     Dosage: DOSE: 6 MG/ML/MIN (AS PER PROTOCOL).?ON 03/DEC/2020, HE RECEIVED MOST RECENT DOSE OF CARBOPLATIN (73
     Route: 042
     Dates: start: 20201203
  4. PEMETREXED [Suspect]
     Active Substance: PEMETREXED
     Indication: Lung adenocarcinoma
     Dosage: ON 03/DEC/2020, HE RECEIVED MOST RECENT DOSE OF PEMETREXED (920 MG) PRIOR TO ONSET OF SERIOUS ADVERS
     Route: 042
     Dates: start: 20201203
  5. MORPHINE SULFATE [Concomitant]
     Active Substance: MORPHINE SULFATE
     Indication: Pain
     Dates: start: 20201010
  6. HERBALS [Concomitant]
     Active Substance: HERBALS
     Indication: Pain
     Dates: start: 20201202, end: 20201209
  7. FOLIC ACID [Concomitant]
     Active Substance: FOLIC ACID
     Dates: start: 20201127
  8. DEXAMETHASONE ACETATE [Concomitant]
     Active Substance: DEXAMETHASONE ACETATE
     Route: 048
     Dates: start: 20201202, end: 20201202
  9. DEXAMETHASONE ACETATE [Concomitant]
     Active Substance: DEXAMETHASONE ACETATE
     Route: 048
     Dates: start: 20201203, end: 20201204
  10. DEXAMETHASONE ACETATE [Concomitant]
     Active Substance: DEXAMETHASONE ACETATE
     Route: 042
     Dates: start: 20201212, end: 20201212
  11. DEXAMETHASONE ACETATE [Concomitant]
     Active Substance: DEXAMETHASONE ACETATE
     Route: 042
     Dates: start: 20201213, end: 20201215
  12. DEXAMETHASONE ACETATE [Concomitant]
     Active Substance: DEXAMETHASONE ACETATE
     Route: 042
     Dates: start: 20201216, end: 20201216
  13. DEXAMETHASONE ACETATE [Concomitant]
     Active Substance: DEXAMETHASONE ACETATE
     Route: 042
     Dates: start: 20201217, end: 20201218
  14. VITAMIN B12 [Concomitant]
     Active Substance: CYANOCOBALAMIN
     Dates: start: 20201203, end: 20201203
  15. INCADRONATE DISODIUM [Concomitant]
     Active Substance: INCADRONATE DISODIUM
     Indication: Metastases to bone
     Dates: start: 20201201, end: 20201201
  16. LANSOPRAZOLE [Concomitant]
     Active Substance: LANSOPRAZOLE
     Dates: start: 20201203, end: 20201203
  17. LANSOPRAZOLE [Concomitant]
     Active Substance: LANSOPRAZOLE
     Dates: start: 20201204, end: 20201210
  18. LANSOPRAZOLE [Concomitant]
     Active Substance: LANSOPRAZOLE
     Dates: start: 20201212, end: 20201218
  19. PALONOSETRON HYDROCHLORIDE [Concomitant]
     Active Substance: PALONOSETRON HYDROCHLORIDE
     Dates: start: 20201203, end: 20201203
  20. ALBUMIN HUMAN [Concomitant]
     Active Substance: ALBUMIN HUMAN
     Dates: start: 20201217, end: 20201218
  21. LEUCOGEN [Concomitant]
     Active Substance: LEUCOGEN
     Dates: start: 20201204
  22. ONDANSETRON HYDROCHLORIDE [Concomitant]
     Active Substance: ONDANSETRON HYDROCHLORIDE
     Dates: start: 20201204, end: 20201207
  23. BISOPROLOL FUMARATE [Concomitant]
     Active Substance: BISOPROLOL FUMARATE
     Indication: Hypertension
     Dates: start: 2010
  24. LOSARTAN POTASSIUM [Concomitant]
     Active Substance: LOSARTAN POTASSIUM
     Indication: Hypertension
     Dates: start: 2010
  25. COMPOUND CHLORHEXIDINE GARGLE [Concomitant]
     Dates: start: 20201213, end: 20201218
  26. FUROSEMIDE [Concomitant]
     Active Substance: FUROSEMIDE
     Dosage: MEDICATION ONGOING NO?MEDICATION INDICATION LIGHTEN THE LOAD ON THE HEART
     Dates: start: 20201217, end: 20201217
  27. AMBROXOL HYDROCHLORIDE [Concomitant]
     Active Substance: AMBROXOL HYDROCHLORIDE
     Dosage: MEDICATION ONGOING NO?MEDICATION INDICATION ANTI-TUSSIVE
     Dates: start: 20201213, end: 20201218
  28. DOXOFYLLINE [Concomitant]
     Active Substance: DOXOFYLLINE
     Dosage: MEDICATION ONGOING NO?MEDICATION INDICATION ANTIASTHMATIC EFFECT
     Dates: start: 20201213, end: 20201218
  29. PROMETHAZINE HYDROCHLORIDE [Concomitant]
     Active Substance: PROMETHAZINE HYDROCHLORIDE
     Dates: start: 20201216, end: 20201216
  30. FLUCONAZOLE [Concomitant]
     Active Substance: FLUCONAZOLE
     Dosage: MEDICATION ONGOING NO?MEDICATION INDICATION INFECTION PREVENTION
     Dates: start: 20201219, end: 20210102

REACTIONS (3)
  - Platelet count decreased [Recovered/Resolved]
  - White blood cell count decreased [Recovered/Resolved]
  - Neutrophil count decreased [Recovered/Resolved]

NARRATIVE: CASE EVENT DATE: 20201210
